FAERS Safety Report 17879402 (Version 1)
Quarter: 2020Q2

REPORT INFORMATION
  Report Type: Spontaneous
  Country: DE (occurrence: DE)
  Receive Date: 20200610
  Receipt Date: 20200610
  Transmission Date: 20200714
  Serious: Yes (Death)
  Sender: FDA-Public Use
  Company Number: NVSC2020DE160936

PATIENT
  Age: 70 Year
  Sex: Female

DRUGS (2)
  1. DOCETAXEL. [Suspect]
     Active Substance: DOCETAXEL
     Indication: ADENOCARCINOMA
     Route: 065
     Dates: start: 201703, end: 201707
  2. VARGATEF [Suspect]
     Active Substance: NINTEDANIB
     Indication: ADENOCARCINOMA
     Route: 065
     Dates: start: 201703, end: 201707

REACTIONS (1)
  - Death [Fatal]

NARRATIVE: CASE EVENT DATE: 20171102
